FAERS Safety Report 4420272-7 (Version None)
Quarter: 2004Q3

REPORT INFORMATION
  Report Type: 
  Country: None (occurrence: None)
  Receive Date: 20040809
  Receipt Date: 20040329
  Transmission Date: 20050211
  Serious: No
  Sender: FDA-Public Use
  Company Number: US-GLAXOSMITHKLINE-A0504912A

PATIENT
  Age: 67 Year
  Sex: Female

DRUGS (3)
  1. PAXIL [Suspect]
     Dosage: 10MG PER DAY
     Route: 048
  2. BUSPAR [Concomitant]
  3. AMBIEN [Concomitant]

REACTIONS (2)
  - INSOMNIA [None]
  - PSYCHOMOTOR HYPERACTIVITY [None]
